FAERS Safety Report 5938793-4 (Version None)
Quarter: 2008Q4

REPORT INFORMATION
  Report Type: 
  Country: None (occurrence: None)
  Receive Date: 20081103
  Receipt Date: 20081021
  Transmission Date: 20090506
  Serious: Yes (Death)
  Sender: FDA-Public Use
  Company Number: US-BAYER-200833680NA

PATIENT
  Age: 62 Year
  Sex: Female

DRUGS (1)
  1. BETAPACE [Suspect]
     Indication: HEART RATE INCREASED
     Route: 048
     Dates: start: 20080703

REACTIONS (3)
  - ARTERIOSCLEROSIS CORONARY ARTERY [None]
  - ATRIAL FIBRILLATION [None]
  - MYOCARDIAL INFARCTION [None]
